FAERS Safety Report 8579082-1 (Version None)
Quarter: 2012Q3

REPORT INFORMATION
  Report Type: 
  Country: None (occurrence: None)
  Receive Date: 20120808
  Receipt Date: 20120724
  Transmission Date: 20120928
  Serious: Yes (Hospitalization, Other)
  Sender: FDA-Public Use
  Company Number: PT-ROCHE-1092517

PATIENT
  Age: 42 Year
  Sex: Male
  Weight: 85 kg

DRUGS (4)
  1. ACTEMRA [Suspect]
     Route: 042
     Dates: start: 20120719
  2. LEPICORTINOLO [Concomitant]
     Route: 048
     Dates: start: 20120503
  3. ACTEMRA [Suspect]
     Indication: RHEUMATOID ARTHRITIS
     Route: 042
     Dates: start: 20120503
  4. ACTEMRA [Suspect]
     Route: 042
     Dates: start: 20120531

REACTIONS (3)
  - MYOCARDIAL INFARCTION [None]
  - CORONARY ARTERY DISEASE [None]
  - SYSTOLIC DYSFUNCTION [None]
